FAERS Safety Report 11628420 (Version 1)
Quarter: 2015Q4

REPORT INFORMATION
  Report Type: Spontaneous
  Country: US (occurrence: None)
  Receive Date: 20151013
  Receipt Date: 20151013
  Transmission Date: 20160304
  Serious: No
  Sender: FDA-Public Use
  Company Number: None

PATIENT
  Age: 51 Year
  Sex: Female
  Weight: 88 kg

DRUGS (13)
  1. BENADRYL [Concomitant]
     Active Substance: DIPHENHYDRAMINE HYDROCHLORIDE
  2. MOTRIN [Concomitant]
     Active Substance: IBUPROFEN
  3. FLECAINIDE [Suspect]
     Active Substance: FLECAINIDE
     Indication: VENTRICULAR EXTRASYSTOLES
     Dosage: 1 PILL TWICE DAILY TAKEN BY MOUTH
     Route: 048
     Dates: start: 20151008, end: 20151009
  4. FOLIC ACID. [Concomitant]
     Active Substance: FOLIC ACID
  5. CARDIZEM CD [Concomitant]
     Active Substance: DILTIAZEM HYDROCHLORIDE
  6. PEPCID [Concomitant]
     Active Substance: FAMOTIDINE
  7. PREDNISONE. [Concomitant]
     Active Substance: PREDNISONE
  8. VITAMIN D3 [Concomitant]
     Active Substance: CHOLECALCIFEROL
  9. MULTIVITAMIN [Concomitant]
     Active Substance: VITAMINS
  10. BUMEX [Concomitant]
     Active Substance: BUMETANIDE
  11. BACLOFEN. [Concomitant]
     Active Substance: BACLOFEN
  12. IVIG [Concomitant]
     Active Substance: HUMAN IMMUNOGLOBULIN G
  13. GARLIC OIL [Concomitant]
     Active Substance: GARLIC OIL

REACTIONS (10)
  - Nausea [None]
  - Disturbance in attention [None]
  - Decreased appetite [None]
  - Vision blurred [None]
  - Feeling abnormal [None]
  - Fatigue [None]
  - Heart rate decreased [None]
  - Diarrhoea [None]
  - Abdominal pain [None]
  - Confusional state [None]

NARRATIVE: CASE EVENT DATE: 20151009
